FAERS Safety Report 15254896 (Version 1)
Quarter: 2018Q3

REPORT INFORMATION
  Report Type: Spontaneous
  Country: US (occurrence: US)
  Receive Date: 20180808
  Receipt Date: 20180808
  Transmission Date: 20181010
  Serious: No
  Sender: FDA-Public Use
  Company Number: US-MYLANLABS-2018M1058453

PATIENT
  Sex: Female
  Weight: 79 kg

DRUGS (1)
  1. ESTRADIOL TRANSDERMAL SYSTEM [Suspect]
     Active Substance: ESTRADIOL
     Indication: HORMONE REPLACEMENT THERAPY
     Dosage: UNK
     Route: 062
     Dates: start: 20130121

REACTIONS (6)
  - Product adhesion issue [Unknown]
  - Hot flush [Recovered/Resolved]
  - Mood swings [Recovered/Resolved]
  - Night sweats [Recovered/Resolved]
  - Vulvovaginal dryness [Recovered/Resolved]
  - Wrong technique in product usage process [Not Recovered/Not Resolved]
